FAERS Safety Report 7002015-6 (Version None)
Quarter: 2010Q3

REPORT INFORMATION
  Report Type: 
  Country: None (occurrence: None)
  Receive Date: 20100920
  Receipt Date: 20100910
  Transmission Date: 20110219
  Serious: Yes (Death)
  Sender: FDA-Public Use
  Company Number: B0675311A

PATIENT
  Age: 22 Year
  Sex: Male

DRUGS (1)
  1. ZYBAN [Suspect]
     Route: 048
     Dates: start: 20100829

REACTIONS (3)
  - BRAIN DEATH [None]
  - COMPLETED SUICIDE [None]
  - HYPOXIC-ISCHAEMIC ENCEPHALOPATHY [None]
